FAERS Safety Report 8287637-7 (Version None)
Quarter: 2012Q2

REPORT INFORMATION
  Report Type: 
  Country: None (occurrence: None)
  Receive Date: 20120416
  Receipt Date: 20120410
  Transmission Date: 20120825
  Serious: Yes (Other)
  Sender: FDA-Public Use
  Company Number: PHEH2012US004120

PATIENT
  Sex: Male

DRUGS (5)
  1. CRESTOR [Concomitant]
  2. VALTURNA [Suspect]
     Dosage: 300/320 MG QD
  3. VALTURNA [Suspect]
     Dosage: 300/320MG, UNK
  4. VALTURNA [Suspect]
     Dosage: UNK UKN, UNK
  5. BLOOD THINNER [Concomitant]
     Dosage: UNK UKN, UNK

REACTIONS (11)
  - BLOOD CHOLESTEROL INCREASED [None]
  - RENAL DISORDER [None]
  - GAIT DISTURBANCE [None]
  - CONFUSIONAL STATE [None]
  - DIABETES MELLITUS [None]
  - ARTHRITIS [None]
  - CARDIAC DISORDER [None]
  - SKIN DISCOLOURATION [None]
  - CONTUSION [None]
  - BLOOD PRESSURE FLUCTUATION [None]
  - HAEMORRHAGIC DISORDER [None]
